FAERS Safety Report 7429056-9 (Version None)
Quarter: 2011Q2

REPORT INFORMATION
  Report Type: 
  Country: None (occurrence: None)
  Receive Date: 20110421
  Receipt Date: 20110411
  Transmission Date: 20111010
  Serious: Yes (Other)
  Sender: FDA-Public Use
  Company Number: AR-ROCHE-770552

PATIENT
  Age: 81 Year
  Sex: Female

DRUGS (1)
  1. BEVACIZUMAB [Suspect]
     Indication: RETINAL VEIN THROMBOSIS
     Dosage: PATIENT RECEIVED 2 DOSES
     Route: 031

REACTIONS (1)
  - CEREBROVASCULAR ACCIDENT [None]
